FAERS Safety Report 4292880-8 (Version None)
Quarter: 2004Q1

REPORT INFORMATION
  Report Type: 
  Country: None (occurrence: None)
  Receive Date: 20040212
  Receipt Date: 20030717
  Transmission Date: 20041129
  Serious: No
  Sender: FDA-Public Use
  Company Number: US-GLAXOSMITHKLINE-A0417242A

PATIENT
  Age: 35 Year
  Sex: Female

DRUGS (3)
  1. PAXIL [Suspect]
     Indication: AGORAPHOBIA
     Route: 048
     Dates: start: 20030122
  2. XANAX [Concomitant]
  3. VITAMIN CAP [Concomitant]

REACTIONS (1)
  - SENSORY DISTURBANCE [None]
